FAERS Safety Report 18544921 (Version 1)
Quarter: 2020Q4

REPORT INFORMATION
  Report Type: Spontaneous
  Country: US (occurrence: US)
  Receive Date: 20201125
  Receipt Date: 20201125
  Transmission Date: 20210114
  Serious: No
  Sender: FDA-Public Use
  Company Number: None

PATIENT
  Age: 39 Year
  Sex: Female
  Weight: 55.17 kg

DRUGS (1)
  1. BUPRENORPHINE/NALOXONE FILM [Suspect]
     Active Substance: BUPRENORPHINE\NALOXONE
     Indication: DRUG DEPENDENCE
     Route: 060
     Dates: start: 20191023, end: 20191029

REACTIONS (8)
  - Hyperhidrosis [None]
  - Withdrawal syndrome [None]
  - Treatment failure [None]
  - Anxiety [None]
  - Rhinorrhoea [None]
  - Product substitution issue [None]
  - Abdominal pain [None]
  - Heart rate increased [None]

NARRATIVE: CASE EVENT DATE: 20191023
